FAERS Safety Report 5837572-6 (Version None)
Quarter: 2008Q3

REPORT INFORMATION
  Report Type: 
  Country: None (occurrence: None)
  Receive Date: 20080807
  Receipt Date: 20080215
  Transmission Date: 20090109
  Serious: Yes (Other)
  Sender: FDA-Public Use
  Company Number: DE-PFIZER INC-2008064971

PATIENT
  Sex: Female

DRUGS (16)
  1. HYDROXYZINE HYDROCHLORIDE [Suspect]
     Indication: PRURITUS
     Dosage: TEXT:2 DF
     Route: 048
     Dates: start: 20041012, end: 20041019
  2. PROMETHAZINE HCL [Suspect]
     Indication: SEDATION
     Route: 042
     Dates: start: 20041012, end: 20041012
  3. GLUCOSE [Concomitant]
     Indication: HYPOVOLAEMIA
     Route: 042
     Dates: start: 20041012, end: 20041014
  4. ENOXAPARIN SODIUM [Concomitant]
     Indication: THROMBOSIS PROPHYLAXIS
     Route: 058
     Dates: start: 20041012, end: 20041019
  5. CARBAMAZEPINE [Concomitant]
     Indication: CONVULSION
     Route: 048
     Dates: start: 20041012
  6. BERODUAL [Concomitant]
     Indication: CHRONIC OBSTRUCTIVE PULMONARY DISEASE
     Dosage: TEXT:2DF/D
     Route: 055
     Dates: start: 20041012, end: 20041019
  7. NITROGLYCERIN [Concomitant]
     Indication: ANGINA PECTORIS
     Dosage: TEXT:1DF
     Route: 048
     Dates: start: 20041013
  8. RAMIPRIL [Concomitant]
     Indication: HYPERTENSION
     Route: 048
     Dates: start: 20041013, end: 20041015
  9. METOPROLOL SUCCINATE [Concomitant]
     Indication: HYPERTENSION
     Dosage: TEXT:1DF
     Route: 048
     Dates: start: 20020505
  10. AMLODIPINE [Concomitant]
     Indication: HYPERTENSION
     Route: 048
     Dates: start: 20020501, end: 20041012
  11. AMLODIPINE [Concomitant]
     Route: 048
     Dates: start: 20041016
  12. MELOXICAM [Concomitant]
     Indication: OSTEOARTHRITIS
     Route: 048
     Dates: start: 20040601, end: 20041012
  13. MIRTAZAPINE [Concomitant]
     Indication: MAJOR DEPRESSION
     Route: 048
     Dates: start: 20040605, end: 20041012
  14. CITALOPRAM HYDROBROMIDE [Concomitant]
     Indication: DEPRESSION
     Route: 048
     Dates: start: 20040601
  15. CLOPIDOGREL [Concomitant]
     Indication: ANEURYSM REPAIR
     Route: 048
     Dates: start: 20040515
  16. TRIAMPUR COMPOSITUM [Concomitant]
     Indication: OEDEMA
     Dosage: TEXT:0.5DF
     Route: 048
     Dates: start: 20040427

REACTIONS (1)
  - STEVENS-JOHNSON SYNDROME [None]
